FAERS Safety Report 25642605 (Version 1)
Quarter: 2025Q3

REPORT INFORMATION
  Report Type: Spontaneous
  Country: US (occurrence: US)
  Receive Date: 20250805
  Receipt Date: 20250805
  Transmission Date: 20251021
  Serious: No
  Sender: SANOFI AVENTIS
  Company Number: US-SA-2025SA223859

PATIENT
  Age: 20 Year

DRUGS (1)
  1. PRIFTIN [Suspect]
     Active Substance: RIFAPENTINE
     Indication: Type IV hypersensitivity reaction
     Dosage: 6 DF, QW
     Route: 048

REACTIONS (1)
  - Off label use [Unknown]
